FAERS Safety Report 16569801 (Version 1)
Quarter: 2019Q3

REPORT INFORMATION
  Report Type: Spontaneous
  Country: US (occurrence: US)
  Receive Date: 20190531
  Receipt Date: 20190531
  Transmission Date: 20191004
  Serious: No
  Sender: FDA-Public Use
  Company Number: None

PATIENT
  Age: 54 Year
  Sex: Female

DRUGS (4)
  1. OTREXUP [Suspect]
     Active Substance: METHOTREXATE
     Indication: RHEUMATOID ARTHRITIS
     Dosage: ?          OTHER DOSE:15MG (0.4ML);?
     Route: 058
     Dates: start: 201809
  2. OTREXUP [Suspect]
     Active Substance: METHOTREXATE
     Indication: COLON CANCER
  3. ENBREL [Suspect]
     Active Substance: ETANERCEPT
     Indication: RHEUMATOID ARTHRITIS
     Route: 058
     Dates: start: 201904
  4. ENBREL [Suspect]
     Active Substance: ETANERCEPT
     Indication: COLON CANCER

REACTIONS (2)
  - Pain [None]
  - Intervertebral disc protrusion [None]
